FAERS Safety Report 5776529-0 (Version None)
Quarter: 2008Q2

REPORT INFORMATION
  Report Type: 
  Country: None (occurrence: None)
  Receive Date: 20080616
  Receipt Date: 20080604
  Transmission Date: 20081010
  Serious: Yes (Life-Threatening, Hospitalization)
  Sender: FDA-Public Use
  Company Number: GXKR2008NL05104

PATIENT
  Age: 72 Year
  Sex: Male

DRUGS (5)
  1. METFORMIN HCL [Suspect]
     Dosage: 1000 MG, TID,
  2. TOLBUTAMIDE [Concomitant]
  3. SIMVASTATIN [Concomitant]
  4. HYDROCHLOROTHIAZIDE [Concomitant]
  5. ENALAPRIL MALEATE [Concomitant]

REACTIONS (13)
  - ABDOMINAL DISCOMFORT [None]
  - CATHETER SEPSIS [None]
  - COMA [None]
  - CONTINUOUS HAEMODIAFILTRATION [None]
  - ENDOTRACHEAL INTUBATION [None]
  - EXTREMITY NECROSIS [None]
  - HAEMODYNAMIC INSTABILITY [None]
  - ILEUS [None]
  - LACTIC ACIDOSIS [None]
  - PNEUMONIA [None]
  - RENAL FAILURE ACUTE [None]
  - RESPIRATORY DISTRESS [None]
  - TRACHEOSTOMY [None]
